FAERS Safety Report 20404365 (Version 1)
Quarter: 2022Q1

REPORT INFORMATION
  Report Type: Spontaneous
  Country: US (occurrence: US)
  Receive Date: 20220131
  Receipt Date: 20220131
  Transmission Date: 20220424
  Serious: No
  Sender: FDA-Public Use
  Company Number: US-ALLERGAN-2135871US

PATIENT
  Sex: Female

DRUGS (1)
  1. BOTOX COSMETIC [Suspect]
     Active Substance: ONABOTULINUMTOXINA
     Indication: Skin wrinkling
     Dosage: 17 UNITS, SINGLE
     Dates: start: 202110, end: 202110

REACTIONS (6)
  - Tremor [Unknown]
  - Multiple use of single-use product [Unknown]
  - Hypersensitivity [Unknown]
  - Muscular weakness [Unknown]
  - Rash [Unknown]
  - Suspected product quality issue [Unknown]

NARRATIVE: CASE EVENT DATE: 20211001
